FAERS Safety Report 5340960-8 (Version None)
Quarter: 2007Q2

REPORT INFORMATION
  Report Type: 
  Country: None (occurrence: None)
  Receive Date: 20070531
  Receipt Date: 20070522
  Transmission Date: 20071010
  Serious: Yes (Other)
  Sender: FDA-Public Use
  Company Number: US-AMGEN-US175333

PATIENT
  Sex: Female

DRUGS (3)
  1. ENBREL [Suspect]
     Indication: RHEUMATOID ARTHRITIS
     Route: 058
     Dates: start: 20040901, end: 20060403
  2. METHOTREXATE SODIUM [Suspect]
     Route: 048
     Dates: start: 20041101, end: 20060403
  3. CELEBREX [Concomitant]
     Route: 065
     Dates: start: 20041001

REACTIONS (1)
  - ABORTION [None]
